FAERS Safety Report 5110701-8 (Version None)
Quarter: 2006Q3

REPORT INFORMATION
  Report Type: 
  Country: None (occurrence: None)
  Receive Date: 20060919
  Receipt Date: 20060906
  Transmission Date: 20061208
  Serious: Yes (Hospitalization)
  Sender: FDA-Public Use
  Company Number: 2006BI011755

PATIENT
  Age: 43 Year
  Sex: Male

DRUGS (7)
  1. AVONEX [Suspect]
     Indication: MULTIPLE SCLEROSIS
     Dosage: 30 UG; UNKNOWN; IM
     Route: 030
  2. AVONEX [Suspect]
     Indication: MULTIPLE SCLEROSIS
     Dosage: 30 UG; UNKNOWN; IM
     Route: 030
     Dates: start: 20060801
  3. METHADONE HCL [Concomitant]
  4. TYLENOL [Concomitant]
  5. KEPPRA [Concomitant]
  6. FOSAMAX [Concomitant]
  7. PROTONIX [Concomitant]

REACTIONS (2)
  - POSTOPERATIVE FEVER [None]
  - POSTOPERATIVE WOUND INFECTION [None]
